FAERS Safety Report 25364752 (Version 1)
Quarter: 2025Q2

REPORT INFORMATION
  Report Type: Report from Study
  Country: FR (occurrence: FR)
  Receive Date: 20250527
  Receipt Date: 20250527
  Transmission Date: 20250716
  Serious: Yes (Congenital Anomaly)
  Sender: ABBVIE
  Company Number: FR-ABBVIE-6301963

PATIENT

DRUGS (3)
  1. LOPINAVIR\RITONAVIR [Suspect]
     Active Substance: LOPINAVIR\RITONAVIR
     Indication: Maternal exposure timing unspecified
     Route: 064
  2. ZIDOVUDINE [Concomitant]
     Active Substance: ZIDOVUDINE
     Indication: Maternal exposure timing unspecified
     Route: 064
  3. LAMIVUDINE [Concomitant]
     Active Substance: LAMIVUDINE
     Indication: Maternal exposure timing unspecified
     Route: 064

REACTIONS (2)
  - Polydactyly [Unknown]
  - Foetal exposure during pregnancy [Unknown]
